FAERS Safety Report 4595151-5 (Version None)
Quarter: 2005Q1

REPORT INFORMATION
  Report Type: 
  Country: None (occurrence: None)
  Receive Date: 20050223
  Receipt Date: 20050210
  Transmission Date: 20050727
  Serious: Yes (Death, Other)
  Sender: FDA-Public Use
  Company Number: 2004090465

PATIENT
  Sex: Male

DRUGS (3)
  1. GEODON [Suspect]
     Indication: ILL-DEFINED DISORDER
  2. QUETIAPINE FUMARATE [Concomitant]
  3. ANTI-DIABETICS (ANTI-DIABETICS) [Concomitant]

REACTIONS (1)
  - DROWNING [None]
